FAERS Safety Report 14335580 (Version 1)
Quarter: 2017Q4

REPORT INFORMATION
  Report Type: Spontaneous
  Country: GB (occurrence: GB)
  Receive Date: 20171229
  Receipt Date: 20171229
  Transmission Date: 20180321
  Serious: Yes (Other)
  Sender: FDA-Public Use
  Company Number: GB-TEVA-2017-GB-838270

PATIENT
  Age: 23 Year
  Sex: Female

DRUGS (5)
  1. GENTAMICIN. [Concomitant]
     Active Substance: GENTAMICIN
     Indication: CHOLANGITIS
     Route: 065
  2. TAZOBACTAM [Concomitant]
     Active Substance: TAZOBACTAM
     Indication: CHOLANGITIS
     Route: 065
  3. PIPERACILLIN [Concomitant]
     Active Substance: PIPERACILLIN
     Indication: CHOLANGITIS
     Route: 065
  4. AMOXICILLIN. [Suspect]
     Active Substance: AMOXICILLIN
     Indication: CHOLANGITIS
     Route: 065
  5. METRONIDAZOLE. [Concomitant]
     Active Substance: METRONIDAZOLE
     Indication: CHOLANGITIS
     Route: 065

REACTIONS (2)
  - Rash morbilliform [Recovered/Resolved]
  - Rash maculo-papular [Recovered/Resolved]
